FAERS Safety Report 9288086 (Version 2)
Quarter: 2013Q2

REPORT INFORMATION
  Report Type: Report from Study
  Country: US (occurrence: US)
  Receive Date: 20130514
  Receipt Date: 20130515
  Transmission Date: 20140414
  Serious: Yes (Hospitalization, Other)
  Sender: FDA-Public Use
  Company Number: US-BAYER-2013-056762

PATIENT
  Age: 79 Year
  Sex: Female

DRUGS (3)
  1. NEXAVAR [Suspect]
     Indication: HEPATIC CANCER
     Dosage: 200 MG, 1 TABLET, DAILY
     Route: 048
     Dates: start: 20130418, end: 20130508
  2. OXYCODONE [Concomitant]
  3. IBUPROFEN [Concomitant]
     Indication: BACK PAIN
     Dosage: BID, PRN

REACTIONS (8)
  - Confusional state [Not Recovered/Not Resolved]
  - Amnesia [None]
  - Dizziness [Not Recovered/Not Resolved]
  - Hypertension [Recovering/Resolving]
  - Abdominal pain upper [Not Recovered/Not Resolved]
  - Constipation [Recovered/Resolved]
  - Chromaturia [Not Recovered/Not Resolved]
  - Weight decreased [Recovered/Resolved]
